FAERS Safety Report 17545662 (Version 1)
Quarter: 2020Q1

REPORT INFORMATION
  Report Type: Spontaneous
  Country: US (occurrence: US)
  Receive Date: 20200313
  Receipt Date: 20200313
  Transmission Date: 20200409
  Serious: No
  Sender: FDA-Public Use
  Company Number: None

PATIENT
  Age: 27 Year
  Sex: Female
  Weight: 52.16 kg

DRUGS (1)
  1. ELURYNG [Suspect]
     Active Substance: ETHINYL ESTRADIOL\ETONOGESTREL
     Dates: start: 20200212, end: 20200304

REACTIONS (8)
  - Mood swings [None]
  - Dyspnoea [None]
  - Product substitution issue [None]
  - Vulvovaginal pruritus [None]
  - Vulvovaginal burning sensation [None]
  - Fungal infection [None]
  - Hypomenorrhoea [None]
  - Vulvovaginal discomfort [None]

NARRATIVE: CASE EVENT DATE: 20200212
